FAERS Safety Report 9143948 (Version 6)
Quarter: 2013Q4

REPORT INFORMATION
  Report Type: Report from Study
  Country: FI (occurrence: FI)
  Receive Date: 20130306
  Receipt Date: 20131226
  Transmission Date: 20140711
  Serious: Yes (Hospitalization)
  Sender: FDA-Public Use
  Company Number: FI-ROCHE-1178923

PATIENT
  Age: 55 Year
  Sex: Female
  Weight: 73.5 kg

DRUGS (13)
  1. TRASTUZUMAB EMTANSINE [Suspect]
     Indication: BREAST CANCER
     Dosage: LAST DOSE PRIOR TO SAE: 09/JAN/2013.
     Route: 042
     Dates: start: 20130109
  2. TRASTUZUMAB EMTANSINE [Suspect]
     Dosage: LAST DOSE PRIOR TO SAE ON 31/JAN/2013
     Route: 042
     Dates: start: 20130131
  3. CALCICHEW D3 FORTE [Concomitant]
     Route: 065
     Dates: start: 2005
  4. NEXIUM [Concomitant]
     Route: 065
     Dates: start: 20121212
  5. MIRTAZAPIN [Concomitant]
     Route: 065
     Dates: start: 20130131
  6. MIRTAZAPIN [Concomitant]
     Route: 065
     Dates: start: 20130104
  7. DEXAMETHASON [Concomitant]
  8. PANACOD [Concomitant]
     Route: 065
  9. EMCONCOR [Concomitant]
     Route: 065
     Dates: start: 20130115
  10. PREDNISOLONE [Concomitant]
     Route: 065
     Dates: start: 20130207, end: 20130217
  11. ZOPINOX [Concomitant]
     Route: 065
     Dates: start: 20130131
  12. MYCOSTATIN [Concomitant]
     Route: 065
     Dates: start: 20130207, end: 20130217
  13. PRIMPERAN (FINLAND) [Concomitant]
     Route: 065
     Dates: start: 20121214

REACTIONS (2)
  - Pneumonia [Recovered/Resolved]
  - Pneumonia [Recovered/Resolved]
